FAERS Safety Report 17446801 (Version 1)
Quarter: 2020Q1

REPORT INFORMATION
  Report Type: Spontaneous
  Country: FR (occurrence: FR)
  Receive Date: 20200221
  Receipt Date: 20200221
  Transmission Date: 20200409
  Serious: Yes (Other)
  Sender: FDA-Public Use
  Company Number: FR-BAYER-2020-026509

PATIENT
  Age: 36 Year
  Sex: Female
  Weight: 65 kg

DRUGS (1)
  1. KYLEENA [Suspect]
     Active Substance: LEVONORGESTREL
     Indication: INTRAUTERINE CONTRACEPTION
     Dosage: 17.5?G PER DAY, CONT
     Route: 015
     Dates: start: 20181109, end: 20191216

REACTIONS (9)
  - Tachycardia [Recovering/Resolving]
  - Adnexa uteri pain [Recovered/Resolved]
  - Loss of libido [Recovering/Resolving]
  - Diffuse alopecia [Recovering/Resolving]
  - Amenorrhoea [Recovering/Resolving]
  - Insomnia [Not Recovered/Not Resolved]
  - Depression [Recovering/Resolving]
  - Panic attack [Not Recovered/Not Resolved]
  - Fatigue [Recovering/Resolving]

NARRATIVE: CASE EVENT DATE: 20190115
